FAERS Safety Report 9466640 (Version 1)
Quarter: 2013Q3

REPORT INFORMATION
  Report Type: Spontaneous
  Country: US (occurrence: US)
  Receive Date: 20130820
  Receipt Date: 20130820
  Transmission Date: 20140515
  Serious: No
  Sender: FDA-Public Use
  Company Number: US-B.I. PHARMACEUTICALS,INC./RIDGEFIELD-2013-BI-24659BP

PATIENT
  Age: 83 Year
  Sex: Male
  Weight: 54 kg

DRUGS (1)
  1. SPIRIVA [Suspect]
     Indication: LUNG CARCINOMA CELL TYPE UNSPECIFIED STAGE IV
     Dosage: STRENGTH: 18 MCG; DAILY DOSE: 64-72 MCG
     Route: 055
     Dates: start: 201208

REACTIONS (4)
  - Constipation [Unknown]
  - Abnormal loss of weight [Unknown]
  - Overdose [Unknown]
  - Off label use [Unknown]
